FAERS Safety Report 17667648 (Version 2)
Quarter: 2020Q2

REPORT INFORMATION
  Report Type: Spontaneous
  Country: FR (occurrence: FR)
  Receive Date: 20200414
  Receipt Date: 20200513
  Transmission Date: 20200713
  Serious: Yes (Hospitalization)
  Sender: FDA-Public Use
  Company Number: NVSC2020FR099635

PATIENT
  Age: 67 Year
  Sex: Male
  Weight: 87.5 kg

DRUGS (1)
  1. VANCOMYCIN SANDOZ [Suspect]
     Active Substance: VANCOMYCIN
     Indication: STAPHYLOCOCCAL INFECTION
     Dosage: 5000 MG, QD
     Route: 041
     Dates: start: 20191220, end: 20191224

REACTIONS (4)
  - Renal failure [Recovered/Resolved]
  - Prescribed overdose [Recovered/Resolved]
  - Antibiotic level above therapeutic [Recovered/Resolved]
  - Product prescribing error [Recovered/Resolved]

NARRATIVE: CASE EVENT DATE: 20191220
